FAERS Safety Report 6836162-6 (Version None)
Quarter: 2010Q3

REPORT INFORMATION
  Report Type: 
  Country: None (occurrence: None)
  Receive Date: 20100713
  Receipt Date: 20100630
  Transmission Date: 20110219
  Serious: Yes (Death)
  Sender: FDA-Public Use
  Company Number: JP-PFIZER INC-2010085571

PATIENT
  Age: 58 Year
  Sex: Male

DRUGS (3)
  1. ADRIAMYCIN PFS [Suspect]
     Indication: MULTIPLE MYELOMA
     Dosage: UNK
  2. ONCOVIN [Suspect]
     Indication: MULTIPLE MYELOMA
  3. DECADRON [Suspect]
     Indication: MULTIPLE MYELOMA

REACTIONS (2)
  - PNEUMOCYSTIS JIROVECI PNEUMONIA [None]
  - PNEUMONIA INFLUENZAL [None]
